FAERS Safety Report 8398720-X (Version None)
Quarter: 2012Q2

REPORT INFORMATION
  Report Type: 
  Country: None (occurrence: None)
  Receive Date: 20120531
  Receipt Date: 20120524
  Transmission Date: 20120825
  Serious: Yes (Disabling)
  Sender: FDA-Public Use
  Company Number: PHHY2012AU044458

PATIENT
  Sex: Male

DRUGS (4)
  1. TASIGNA [Suspect]
     Dosage: 600 MG DAILY
     Route: 048
     Dates: start: 20111201
  2. TASIGNA [Suspect]
     Indication: CHRONIC MYELOID LEUKAEMIA
     Dosage: 800 MG DAILY
     Route: 048
     Dates: end: 20110601
  3. GABAPENTIN [Concomitant]
  4. NEURONTIN [Concomitant]

REACTIONS (3)
  - FATIGUE [None]
  - MUSCULOSKELETAL CHEST PAIN [None]
  - LIBIDO DECREASED [None]
